FAERS Safety Report 7918845-X (Version None)
Quarter: 2011Q4

REPORT INFORMATION
  Report Type: 
  Country: None (occurrence: None)
  Receive Date: 20111116
  Receipt Date: 20111108
  Transmission Date: 20120403
  Serious: Yes (Hospitalization)
  Sender: FDA-Public Use
  Company Number: PHHY2011BR099438

PATIENT
  Sex: Female

DRUGS (10)
  1. METFORMIN HCL [Suspect]
     Dosage: 850 MG, BID
     Route: 048
  2. SOMALGIN CARDIO [Concomitant]
     Dosage: UNK UKN, QD
  3. ATENOLOL [Suspect]
     Indication: HYPERTENSION
     Dosage: UNK UKN, BID
     Route: 048
  4. CAPTOPRIL [Suspect]
     Indication: HYPERTENSION
     Dosage: UNK UKN, BID
     Route: 048
  5. ATROVENT [Concomitant]
     Dosage: UNK UKN, BID
  6. BUSCOPAM [Concomitant]
     Dosage: 40 UKN, TID
  7. SIMVASTATIN [Suspect]
     Indication: BLOOD CHOLESTEROL
     Dosage: 20 MG, BID
  8. RANITIDINE [Suspect]
     Dosage: UNK UKN, BID
     Route: 048
  9. ALDACTONE [Concomitant]
     Dosage: UNK UKN, QD
  10. PENTALAC [Concomitant]
     Indication: CONSTIPATION
     Dosage: 20 ML, UNK

REACTIONS (5)
  - DRUG INEFFECTIVE [None]
  - DYSPHAGIA [None]
  - HEMIPARESIS [None]
  - CEREBROVASCULAR ACCIDENT [None]
  - HYPERTENSION [None]
